FAERS Safety Report 7248993-1 (Version None)
Quarter: 2011Q1

REPORT INFORMATION
  Report Type: 
  Country: None (occurrence: None)
  Receive Date: 20110128
  Receipt Date: 20110126
  Transmission Date: 20110831
  Serious: Yes (Death, Hospitalization)
  Sender: FDA-Public Use
  Company Number: PHFR2010GB04335

PATIENT
  Sex: Male

DRUGS (7)
  1. VALSARTAN [Concomitant]
     Indication: HYPERTENSION
     Dosage: 40 MG, UNK
     Route: 048
  2. AMITRIPTYLINE HCL [Concomitant]
     Indication: SALIVARY HYPERSECRETION
     Dosage: 50 MG, UNK
     Route: 048
  3. BISACODYL [Concomitant]
     Indication: CONSTIPATION
     Dosage: 5 MG, UNK
     Route: 048
  4. CLOZARIL [Suspect]
     Indication: SCHIZOPHRENIA
     Dosage: 500 MG, UNK
     Route: 048
     Dates: start: 20100205
  5. CLOZARIL [Suspect]
     Dosage: UNK
     Route: 048
     Dates: start: 20110116
  6. DEPAKOTE [Concomitant]
     Dosage: 750 MG, UNK
     Route: 048
  7. ZOPICLONE [Concomitant]
     Indication: INSOMNIA
     Dosage: 7.5 MG, UNK
     Route: 048

REACTIONS (3)
  - FLUID OVERLOAD [None]
  - MYOCARDIAL INFARCTION [None]
  - EOSINOPHIL COUNT INCREASED [None]
